FAERS Safety Report 8046556-1 (Version None)
Quarter: 2012Q1

REPORT INFORMATION
  Report Type: 
  Country: None (occurrence: None)
  Receive Date: 20120113
  Receipt Date: 20120106
  Transmission Date: 20120608
  Serious: Yes (Hospitalization, Other)
  Sender: FDA-Public Use
  Company Number: CA-MERCK-1201USA00745

PATIENT
  Age: 60 Year
  Sex: Female
  Weight: 82 kg

DRUGS (17)
  1. RAMIPRIL [Concomitant]
     Route: 065
  2. WELLBUTRIN [Concomitant]
     Route: 065
  3. HYDROCHLOROTHIAZIDE [Concomitant]
     Route: 065
  4. VITAMIN D (UNSPECIFIED) [Concomitant]
     Route: 065
  5. GABAPENTIN [Concomitant]
     Route: 065
  6. PLAVIX [Concomitant]
     Route: 065
  7. NEURONTIN [Concomitant]
     Route: 065
  8. ARTHROTEC [Concomitant]
     Route: 065
  9. LASIX [Concomitant]
     Route: 065
  10. HYDROMORPHONE HCL [Concomitant]
     Route: 065
  11. FOSAMAX PLUS D [Suspect]
     Route: 048
  12. HYDROMORPHONE HCL [Concomitant]
     Route: 065
  13. ELAVIL [Concomitant]
     Route: 065
  14. CALCIUM CARBONATE [Concomitant]
     Route: 065
  15. AMITRIPTYLINE HYDROCHLORIDE [Concomitant]
     Route: 065
  16. ATORVASTAN [Concomitant]
     Route: 065
  17. LIPITOR [Concomitant]
     Route: 065

REACTIONS (6)
  - FALL [None]
  - HOSPITALISATION [None]
  - FRACTURE [None]
  - IMPAIRED HEALING [None]
  - HIP FRACTURE [None]
  - ULNA FRACTURE [None]
